FAERS Safety Report 4696032-9 (Version None)
Quarter: 2005Q2

REPORT INFORMATION
  Report Type: 
  Country: None (occurrence: None)
  Receive Date: 20050621
  Receipt Date: 20050613
  Transmission Date: 20051028
  Serious: Yes (Other)
  Sender: FDA-Public Use
  Company Number: FR-GLAXOSMITHKLINE-B0384824A

PATIENT
  Age: 60 Year
  Sex: Male

DRUGS (1)
  1. MALARONE [Suspect]
     Indication: MALARIA PROPHYLAXIS
     Dosage: 1TAB PER DAY
     Route: 048
     Dates: start: 20050501

REACTIONS (5)
  - COUGH [None]
  - DIARRHOEA [None]
  - MALAISE [None]
  - PAROSMIA [None]
  - WEIGHT DECREASED [None]
